FAERS Safety Report 19622696 (Version 1)
Quarter: 2021Q3

REPORT INFORMATION
  Report Type: Spontaneous
  Country: US (occurrence: US)
  Receive Date: 20210728
  Receipt Date: 20210728
  Transmission Date: 20211014
  Serious: No
  Sender: FDA-Public Use
  Company Number: US-CELGENEUS-USA-20210704844

PATIENT
  Age: 74 Year
  Sex: Male
  Weight: 69.92 kg

DRUGS (1)
  1. REVLIMID [Suspect]
     Active Substance: LENALIDOMIDE
     Indication: PLASMA CELL MYELOMA
     Dosage: 25 MILLIGRAM
     Route: 048
     Dates: start: 20210623

REACTIONS (5)
  - Bone pain [Unknown]
  - Joint swelling [Unknown]
  - Paraesthesia [Unknown]
  - Peripheral coldness [Unknown]
  - Full blood count decreased [Unknown]

NARRATIVE: CASE EVENT DATE: 202106
